FAERS Safety Report 8011069-X (Version None)
Quarter: 2011Q4

REPORT INFORMATION
  Report Type: 
  Country: None (occurrence: None)
  Receive Date: 20111228
  Receipt Date: 20111221
  Transmission Date: 20120403
  Serious: Yes (Disabling, Other)
  Sender: FDA-Public Use
  Company Number: GB-B.I. PHARMACEUTICALS,INC./RIDGEFIELD-2011-UK-00779UK

PATIENT
  Age: 37 Year
  Sex: Female
  Weight: 103 kg

DRUGS (7)
  1. IPRATROPIUM BROMIDE [Suspect]
     Indication: ASTHMA
  2. FLUTICASONE PROPIONATE/SALMETEROL [Suspect]
     Indication: ASTHMA
     Dates: start: 20050101
  3. MONTELUKAST SODIUM [Suspect]
     Dosage: 10 MG
     Route: 048
     Dates: start: 20070101
  4. CITALOPRAM HYDROBROMIDE [Concomitant]
  5. ALBUTEROL SULFATE AUTOHALER [Concomitant]
  6. XOLAIR [Suspect]
     Indication: ASTHMA
     Dosage: 300MG 1/1MONTHS
     Route: 058
     Dates: start: 20091104, end: 20110504
  7. ATROVENT [Concomitant]

REACTIONS (7)
  - SENSORY DISTURBANCE [None]
  - HEMIPARESIS [None]
  - PARAESTHESIA [None]
  - DYSAESTHESIA [None]
  - NERVOUS SYSTEM DISORDER [None]
  - HEADACHE [None]
  - TRANSIENT ISCHAEMIC ATTACK [None]
